FAERS Safety Report 6933136-1 (Version None)
Quarter: 2010Q3

REPORT INFORMATION
  Report Type: 
  Country: None (occurrence: None)
  Receive Date: 20100820
  Receipt Date: 20100811
  Transmission Date: 20110219
  Serious: Yes (Other)
  Sender: FDA-Public Use
  Company Number: US-AMGEN-QUU430666

PATIENT
  Sex: Female

DRUGS (2)
  1. ENBREL [Suspect]
     Indication: PSORIATIC ARTHROPATHY
     Route: 058
     Dates: start: 19980101
  2. METHOTREXATE [Concomitant]
     Route: 058

REACTIONS (5)
  - ABDOMINAL PAIN [None]
  - BONE PAIN [None]
  - CYSTITIS [None]
  - CYSTOPEXY [None]
  - HYSTERECTOMY [None]
